FAERS Safety Report 5069604-X (Version None)
Quarter: 2006Q3

REPORT INFORMATION
  Report Type: 
  Country: None (occurrence: None)
  Receive Date: 20060803
  Receipt Date: 20060725
  Transmission Date: 20061208
  Serious: Yes (Other)
  Sender: FDA-Public Use
  Company Number: FR-BRISTOL-MYERS SQUIBB COMPANY-13455761

PATIENT
  Age: 64 Year
  Sex: Female

DRUGS (3)
  1. PRAVASTATIN [Suspect]
     Indication: HYPERCHOLESTEROLAEMIA
     Dosage: ONE YEAR PRIOR TO THIS 40MG DAILY DOSE, THE PATIENT TOOK 20 MG DAILY FOR ONE YEAR.
     Route: 048
  2. ASPIRIN [Concomitant]
  3. FOSAMAX [Concomitant]

REACTIONS (3)
  - LIGAMENT RUPTURE [None]
  - MUSCLE ATROPHY [None]
  - MUSCULAR WEAKNESS [None]
